FAERS Safety Report 4785408-7 (Version None)
Quarter: 2005Q3

REPORT INFORMATION
  Report Type: 
  Country: None (occurrence: None)
  Receive Date: 20050929
  Receipt Date: 20050917
  Transmission Date: 20060218
  Serious: Yes (Disabling, Other)
  Sender: FDA-Public Use
  Company Number: 2005122661

PATIENT
  Age: 60 Year
  Sex: Female
  Weight: 63.5036 kg

DRUGS (6)
  1. NORVASC [Suspect]
     Indication: HYPERTENSION
     Dosage: SEE IMAGE
     Dates: end: 20040101
  2. LIPITOR [Suspect]
     Indication: BLOOD CHOLESTEROL INCREASED
     Dates: start: 20020601, end: 20030101
  3. PRAVACHOL [Suspect]
     Indication: BLOOD CHOLESTEROL
     Dosage: 20 MG
  4. STATINS (HMG COA REDUCTASE INHIBITORS) [Suspect]
     Indication: ILL-DEFINED DISORDER
  5. VITAMINS (VITAMINS) [Concomitant]
  6. ACTONEL [Concomitant]

REACTIONS (11)
  - BLOOD CHOLESTEROL INCREASED [None]
  - BLOOD PRESSURE SYSTOLIC INCREASED [None]
  - INSOMNIA [None]
  - JOINT SWELLING [None]
  - LOW DENSITY LIPOPROTEIN INCREASED [None]
  - MALAISE [None]
  - MUSCULAR WEAKNESS [None]
  - MYALGIA [None]
  - MYOCARDIAL INFARCTION [None]
  - OEDEMA [None]
  - PAIN [None]
